FAERS Safety Report 16015017 (Version 1)
Quarter: 2019Q1

REPORT INFORMATION
  Report Type: Spontaneous
  Country: CA (occurrence: CA)
  Receive Date: 20190227
  Receipt Date: 20190227
  Transmission Date: 20190418
  Serious: Yes (Disabling)
  Sender: FDA-Public Use
  Company Number: CA-009507513-1902CAN009771

PATIENT
  Age: 49 Year
  Sex: Female

DRUGS (1)
  1. HYZAAR [Suspect]
     Active Substance: HYDROCHLOROTHIAZIDE\LOSARTAN POTASSIUM
     Indication: HYPERTENSION
     Dosage: 50 MILLIGRAM, QD
     Route: 048

REACTIONS (4)
  - Cough [Recovered/Resolved]
  - Insomnia [Recovered/Resolved]
  - Product substitution issue [Recovered/Resolved]
  - Fatigue [Recovered/Resolved]
